FAERS Safety Report 4341230-7 (Version None)
Quarter: 2004Q2

REPORT INFORMATION
  Report Type: 
  Country: None (occurrence: None)
  Receive Date: 20040419
  Receipt Date: 20020516
  Transmission Date: 20050107
  Serious: Yes (Hospitalization, Other)
  Sender: FDA-Public Use
  Company Number: US-MERCK-0205USA02049

PATIENT
  Age: 60 Year
  Sex: Male
  Weight: 120 kg

DRUGS (11)
  1. [THERAPY UNSPECIFIED] [Concomitant]
     Indication: SINUS DISORDER
     Route: 065
  2. ASPIRIN [Concomitant]
     Indication: PROPHYLAXIS
     Route: 065
     Dates: end: 20030725
  3. ASPIRIN [Concomitant]
     Indication: ARTHRALGIA
     Route: 065
     Dates: end: 20030725
  4. LIPITOR [Concomitant]
     Indication: HYPERLIPIDAEMIA
     Route: 065
  5. PERSANTIN INJ [Concomitant]
     Route: 065
  6. AMARYL [Concomitant]
     Indication: DIABETES MELLITUS
     Route: 065
  7. GLUCOPHAGE [Concomitant]
     Indication: DIABETES MELLITUS
     Route: 065
  8. ACTOS [Concomitant]
     Indication: DIABETES MELLITUS
     Route: 065
  9. ZANTAC [Concomitant]
     Route: 065
  10. VIOXX [Suspect]
     Indication: ARTHRITIS
     Route: 048
     Dates: start: 20000121, end: 20000201
  11. COENZYME Q10 [Concomitant]
     Route: 065

REACTIONS (23)
  - AMNESIA [None]
  - AZOTAEMIA [None]
  - BLOOD PRESSURE SYSTOLIC INCREASED [None]
  - CAROTID ARTERY DISEASE [None]
  - CEREBRAL ISCHAEMIA [None]
  - CEREBROVASCULAR ACCIDENT [None]
  - CONFUSIONAL STATE [None]
  - DEMYELINATION [None]
  - DIASTOLIC DYSFUNCTION [None]
  - DISORIENTATION [None]
  - GLIOSIS [None]
  - HYPERTROPHIC CARDIOMYOPATHY [None]
  - HYPOGLYCAEMIA [None]
  - INCOHERENT [None]
  - INJURY [None]
  - LIBIDO DECREASED [None]
  - MENTAL STATUS CHANGES [None]
  - OEDEMA MUCOSAL [None]
  - PERSONALITY CHANGE [None]
  - RESPIRATORY RATE INCREASED [None]
  - SINUS POLYP [None]
  - SINUSITIS [None]
  - THINKING ABNORMAL [None]
